FAERS Safety Report 22289751 (Version 1)
Quarter: 2023Q2

REPORT INFORMATION
  Report Type: Spontaneous
  Country: US (occurrence: None)
  Receive Date: 20230504
  Receipt Date: 20230504
  Transmission Date: 20230721
  Serious: Yes (Disabling, Other)
  Sender: FDA-Public Use
  Company Number: None

PATIENT
  Age: 74 Year
  Sex: Female
  Weight: 76.5 kg

DRUGS (32)
  1. ELECTROLYTES NOS [Suspect]
     Active Substance: ELECTROLYTES NOS
     Indication: Dehydration
     Dosage: OTHER QUANTITY : 1 OUNCE(S);?
     Route: 048
     Dates: start: 20230217, end: 20230427
  2. GAMMAGARD [Concomitant]
     Active Substance: HUMAN IMMUNOGLOBULIN G
  3. FLUTICASONE PROPIONATE [Concomitant]
     Active Substance: FLUTICASONE PROPIONATE
  4. PROZAC [Concomitant]
     Active Substance: FLUOXETINE HYDROCHLORIDE
  5. Ipratropium nose spray [Concomitant]
  6. MELOXICAM [Concomitant]
     Active Substance: MELOXICAM
  7. AZELASTINE [Concomitant]
     Active Substance: AZELASTINE
  8. GABAPENTIN [Concomitant]
     Active Substance: GABAPENTIN
  9. PROAIR HFA [Concomitant]
     Active Substance: ALBUTEROL SULFATE
  10. LIPITOR [Concomitant]
     Active Substance: ATORVASTATIN CALCIUM
  11. LAMICTAL [Concomitant]
     Active Substance: LAMOTRIGINE
  12. PROLIA [Concomitant]
     Active Substance: DENOSUMAB
  13. SINGULAIR [Concomitant]
     Active Substance: MONTELUKAST SODIUM
  14. TRAZODONE [Concomitant]
     Active Substance: TRAZODONE HYDROCHLORIDE
  15. Solinfenacin (Vesicare) [Concomitant]
  16. Anora Inhaler [Concomitant]
  17. ARMODAFINIL [Concomitant]
     Active Substance: ARMODAFINIL
  18. FOLIC ACID [Concomitant]
     Active Substance: FOLIC ACID
  19. Omeprezole DR [Concomitant]
  20. LEVOTHYROXINE [Concomitant]
     Active Substance: LEVOTHYROXINE
  21. METHOTREXATE [Concomitant]
     Active Substance: METHOTREXATE
  22. LIOTHYRONINE [Concomitant]
     Active Substance: LIOTHYRONINE
  23. Orencia w/ Maltrose [Concomitant]
  24. ACETAMINOPHEN\OXYCODONE HYDROCHLORIDE [Suspect]
     Active Substance: ACETAMINOPHEN\OXYCODONE HYDROCHLORIDE
  25. EZETIMIBE [Concomitant]
     Active Substance: EZETIMIBE
  26. DEVICE [Concomitant]
     Active Substance: DEVICE
  27. Garden of Life Vitamin Code 50 + Wiser Women [Concomitant]
  28. CALCIUM [Concomitant]
     Active Substance: CALCIUM
  29. VITAMIN D3 [Concomitant]
     Active Substance: CHOLECALCIFEROL
  30. COENZYME Q10 [Concomitant]
     Active Substance: DIETARY SUPPLEMENT\UBIDECARENONE
  31. FISH OIL [Concomitant]
     Active Substance: FISH OIL
  32. MELATONIN [Concomitant]
     Active Substance: MELATONIN

REACTIONS (5)
  - Endocrine disorder [None]
  - Blood parathyroid hormone abnormal [None]
  - Fatigue [None]
  - Depressed level of consciousness [None]
  - Feeling abnormal [None]

NARRATIVE: CASE EVENT DATE: 20230217
